FAERS Safety Report 12404234 (Version 1)
Quarter: 2016Q2

REPORT INFORMATION
  Report Type: Spontaneous
  Country: US (occurrence: US)
  Receive Date: 20160525
  Receipt Date: 20160525
  Transmission Date: 20160815
  Serious: No
  Sender: FDA-Public Use
  Company Number: US-BAYER-2016-099227

PATIENT
  Sex: Male

DRUGS (3)
  1. ALEVE PM [Suspect]
     Active Substance: DIPHENHYDRAMINE HYDROCHLORIDE\NAPROXEN SODIUM
     Indication: TOOTHACHE
     Dosage: 2 DF, QD
  2. ALEVE [Suspect]
     Active Substance: NAPROXEN SODIUM
     Indication: TOOTHACHE
     Dosage: 1 DF, QD
  3. CENTRUM [Concomitant]
     Active Substance: VITAMINS

REACTIONS (3)
  - Poor quality sleep [None]
  - Vomiting [None]
  - Headache [Recovered/Resolved]
